FAERS Safety Report 16487458 (Version 1)
Quarter: 2019Q2

REPORT INFORMATION
  Report Type: Spontaneous
  Country: US (occurrence: US)
  Receive Date: 20190517
  Receipt Date: 20190517
  Transmission Date: 20190711
  Serious: No
  Sender: FDA-Public Use
  Company Number: None

PATIENT
  Age: 53 Year
  Sex: Female

DRUGS (1)
  1. TREMFYA [Suspect]
     Active Substance: GUSELKUMAB
     Indication: PSORIASIS
     Dosage: ?          OTHER FREQUENCY:EVERY8WEEKS;?
     Route: 058
     Dates: start: 201903

REACTIONS (2)
  - Dyspnoea [None]
  - Chest pain [None]

NARRATIVE: CASE EVENT DATE: 201903
